FAERS Safety Report 12114949 (Version 1)
Quarter: 2016Q1

REPORT INFORMATION
  Report Type: Spontaneous
  Country: MX (occurrence: MX)
  Receive Date: 20160225
  Receipt Date: 20160225
  Transmission Date: 20160526
  Serious: Yes (Other)
  Sender: FDA-Public Use
  Company Number: MX-PFIZER INC-2016110821

PATIENT
  Age: 92 Year
  Sex: Female

DRUGS (1)
  1. NORVASC [Suspect]
     Active Substance: AMLODIPINE BESYLATE
     Route: 048

REACTIONS (2)
  - Bedridden [Not Recovered/Not Resolved]
  - Senile dementia [Not Recovered/Not Resolved]
